FAERS Safety Report 5453268-7 (Version None)
Quarter: 2007Q3

REPORT INFORMATION
  Report Type: 
  Country: None (occurrence: None)
  Receive Date: 20070914
  Receipt Date: 20070905
  Transmission Date: 20080115
  Serious: Yes (Other)
  Sender: FDA-Public Use
  Company Number: US-PFIZER INC-2007074908

PATIENT
  Sex: Female
  Weight: 62.3 kg

DRUGS (4)
  1. CHANTIX [Suspect]
     Indication: SMOKING CESSATION THERAPY
  2. NORVASC [Concomitant]
  3. ASPIRIN [Concomitant]
  4. OTHER RESPIRATORY SYSTEM PRODUCTS [Concomitant]

REACTIONS (3)
  - GINGIVAL BLEEDING [None]
  - OEDEMA PERIPHERAL [None]
  - VITREOUS FLOATERS [None]
